FAERS Safety Report 4664420-2 (Version None)
Quarter: 2005Q2

REPORT INFORMATION
  Report Type: 
  Country: None (occurrence: None)
  Receive Date: 20050518
  Receipt Date: 20050506
  Transmission Date: 20051028
  Serious: Yes (Hospitalization, Other)
  Sender: FDA-Public Use
  Company Number: GB-AMGEN-UK131821

PATIENT
  Sex: Male

DRUGS (5)
  1. NEULASTA [Suspect]
     Indication: CHEMOTHERAPY
     Route: 058
     Dates: start: 20050426
  2. VINCRISTINE [Concomitant]
     Route: 065
     Dates: start: 20050301
  3. IFOSFAMIDE [Concomitant]
     Route: 065
     Dates: start: 20050301
  4. DOXORUBICIN HCL [Concomitant]
     Route: 065
     Dates: start: 20050301
  5. ETOPOSIDE [Concomitant]
     Route: 065
     Dates: start: 20050301

REACTIONS (2)
  - NEUTROPENIC SEPSIS [None]
  - PALMAR-PLANTAR ERYTHRODYSAESTHESIA SYNDROME [None]
